FAERS Safety Report 16676076 (Version 1)
Quarter: 2019Q3

REPORT INFORMATION
  Report Type: Spontaneous
  Country: DE (occurrence: DE)
  Receive Date: 20190807
  Receipt Date: 20190807
  Transmission Date: 20191004
  Serious: Yes (Other)
  Sender: FDA-Public Use
  Company Number: DE-ALK-ABELLO A/S-2019AA002810

PATIENT

DRUGS (1)
  1. ACARIZAX 12 SQ-HDM [Suspect]
     Active Substance: DERMATOPHAGOIDES FARINAE\DERMATOPHAGOIDES PTERONYSSINUS
     Indication: PRODUCT USED FOR UNKNOWN INDICATION
     Dosage: 12 SQ-HDM
     Route: 060
     Dates: start: 20190415, end: 20190417

REACTIONS (2)
  - Arrhythmia [Recovered/Resolved]
  - Extrasystoles [Recovered/Resolved]

NARRATIVE: CASE EVENT DATE: 20190417
